FAERS Safety Report 8138646-X (Version None)
Quarter: 2012Q1

REPORT INFORMATION
  Report Type: 
  Country: None (occurrence: None)
  Receive Date: 20120215
  Receipt Date: 20120131
  Transmission Date: 20120608
  Serious: Yes (Hospitalization)
  Sender: FDA-Public Use
  Company Number: FI-TEVA-2011005533

PATIENT
  Sex: Male
  Weight: 101 kg

DRUGS (9)
  1. BENDAMUSTINE HCL [Suspect]
     Indication: CHRONIC LYMPHOCYTIC LEUKAEMIA
     Route: 042
     Dates: start: 20111019
  2. BENDAMUSTINE HCL [Suspect]
     Dosage: 150 MILLIGRAM;
     Route: 042
  3. LOSARTAN POTASSIUM [Concomitant]
     Dates: start: 19910101
  4. RABEPRAZOLE SODIUM [Concomitant]
     Dates: start: 20040101
  5. CALCIUM + VITAMIN D [Concomitant]
     Dates: start: 20100301
  6. ALLOPURINOL [Concomitant]
     Dates: start: 20111012
  7. AMLODIPINE [Concomitant]
     Dates: start: 19910101
  8. RITUXIMAB [Suspect]
     Indication: CHRONIC LYMPHOCYTIC LEUKAEMIA
     Route: 042
     Dates: start: 20111019
  9. RITUXIMAB [Suspect]
     Route: 042

REACTIONS (6)
  - BLOOD CULTURE POSITIVE [None]
  - WHITE BLOOD CELL COUNT DECREASED [None]
  - PYREXIA [None]
  - SEPSIS [None]
  - NEUTROPHIL COUNT DECREASED [None]
  - LISTERIOSIS [None]
